FAERS Safety Report 20143424 (Version 1)
Quarter: 2021Q4

REPORT INFORMATION
  Report Type: Spontaneous
  Country: IR (occurrence: IR)
  Receive Date: 20211203
  Receipt Date: 20211203
  Transmission Date: 20220303
  Serious: Yes (Hospitalization, Other)
  Sender: FDA-Public Use
  Company Number: IR-CIPLA LTD.-2021IR07779

PATIENT

DRUGS (1)
  1. ALBENDAZOLE [Suspect]
     Active Substance: ALBENDAZOLE
     Indication: Echinococciasis
     Dosage: 800 MILLIGRAM, QD
     Route: 065

REACTIONS (6)
  - Lipase increased [Recovering/Resolving]
  - International normalised ratio increased [Unknown]
  - Amylase increased [Recovering/Resolving]
  - Toxicity to various agents [Unknown]
  - Hepatitis [Recovering/Resolving]
  - White blood cell count increased [Recovering/Resolving]
